FAERS Safety Report 8759572 (Version 4)
Quarter: 2012Q4

REPORT INFORMATION
  Report Type: 
  Country: US (occurrence: US)
  Receive Date: 20120829
  Receipt Date: 20121226
  Transmission Date: 20130627
  Serious: Yes (Hospitalization)
  Sender: FDA-Public Use
  Company Number: PHHO2011US018688

PATIENT
  Age: 68 Year
  Sex: Female
  Weight: 70.3 kg

DRUGS (4)
  1. MYCOPHENOLATE MOFETIL [Suspect]
     Indication: RENAL TRANSPLANT
     Dosage: 1000 mg, Q12H
     Route: 048
     Dates: start: 20110902
  2. PREDNISONE [Suspect]
     Indication: RENAL TRANSPLANT
     Dosage: 20 mg, QD
     Route: 048
     Dates: start: 20110902
  3. GLIPIZIDE [Suspect]
     Indication: HYPERGLYCAEMIA
     Dosage: 10 mg, BID
     Route: 048
     Dates: start: 20110907
  4. PROGRAF [Suspect]
     Indication: RENAL TRANSPLANT
     Dosage: 2 mg, BID
     Dates: start: 20110902

REACTIONS (3)
  - Escherichia infection [Recovered/Resolved]
  - Diabetes mellitus [Recovered/Resolved]
  - Seroma [Recovered/Resolved]
